FAERS Safety Report 7705972-5 (Version None)
Quarter: 2011Q3

REPORT INFORMATION
  Report Type: 
  Country: None (occurrence: None)
  Receive Date: 20110824
  Receipt Date: 20110810
  Transmission Date: 20111222
  Serious: Yes (Hospitalization)
  Sender: FDA-Public Use
  Company Number: PHHO2011JP10788

PATIENT
  Sex: Male
  Weight: 58 kg

DRUGS (23)
  1. TENORMIN [Concomitant]
     Indication: HYPERTENSION
     Dosage: 12.5 MG, UNK
     Route: 048
     Dates: start: 20110712, end: 20110729
  2. ATELEC [Concomitant]
     Indication: HYPERTENSION
     Dosage: 20 MG, UNK
     Route: 048
     Dates: start: 20110623, end: 20110729
  3. RABEPRAZOLE SODIUM [Concomitant]
     Dosage: 10 MG, UNK
     Route: 048
     Dates: start: 20110622, end: 20110729
  4. LASIX [Concomitant]
     Indication: CARDIAC FAILURE CHRONIC
     Dosage: 20 MG, UNK
     Route: 048
     Dates: start: 20100713, end: 20110718
  5. EPLERENONE [Concomitant]
     Indication: CARDIAC FAILURE CHRONIC
     Dosage: 50 MG, UNK
     Route: 048
     Dates: start: 20100713, end: 20110618
  6. AMINO ACIDS/CARBOHYDRATES/MINERALS/VITAMINS, [Concomitant]
     Indication: NUTRITIONAL SUPPORT
     Dosage: 1000 ML, UNK
     Route: 042
     Dates: start: 20110717, end: 20110728
  7. BLINDED ALISKIREN [Suspect]
     Indication: CARDIAC FAILURE
     Dosage: CODE NOT BROKEN
     Route: 048
     Dates: start: 20100302, end: 20110618
  8. BLINDED NO TREATMENT RECEIVED [Suspect]
     Indication: CARDIAC FAILURE
     Dosage: CODE NOT BROKEN
     Route: 048
     Dates: start: 20100302, end: 20110618
  9. ALLOID [Concomitant]
     Indication: GASTRITIS PROPHYLAXIS
     Dosage: 60 ML, UNK
     Route: 048
     Dates: start: 20110726, end: 20110729
  10. ENALAPRIL MALEATE [Suspect]
     Indication: CARDIAC FAILURE CHRONIC
     Dosage: 20 MG, UNK
     Route: 048
     Dates: start: 20100109
  11. ASPIRIN [Concomitant]
     Indication: CARDIAC FAILURE CHRONIC
  12. PRIMPERAN TAB [Concomitant]
     Indication: NAUSEA
     Dosage: 2 ML, UNK
     Route: 042
     Dates: start: 20110618, end: 20110728
  13. ALLOPURINOL [Concomitant]
     Indication: HYPERURICAEMIA
     Dosage: 100 MG, UNK
     Route: 048
     Dates: start: 20090220, end: 20110618
  14. ALISKIREN [Suspect]
     Indication: CARDIAC FAILURE CHRONIC
     Dosage: 300 MG, UNK
     Route: 048
     Dates: start: 20100201
  15. CARVEDILOL [Concomitant]
     Indication: CARDIAC FAILURE CHRONIC
     Dosage: 2.5 MG, UNK
     Route: 048
     Dates: start: 20110524, end: 20110618
  16. WARFARIN SODIUM [Concomitant]
     Indication: ATRIAL FIBRILLATION
     Dosage: 3.5 MG, UNK
     Route: 048
     Dates: start: 20100301, end: 20110618
  17. CEFTRIAXONE SODIUM [Concomitant]
     Indication: SEPSIS
     Dosage: 1 G, UNK
     Route: 042
     Dates: start: 20110728
  18. ENALAPRIL MALEATE [Suspect]
     Indication: CARDIAC FAILURE
     Dosage: CODE NOT BROKEN
     Route: 048
     Dates: start: 20100302, end: 20110618
  19. RABEPRAZOLE SODIUM [Concomitant]
     Indication: PROPHYLAXIS
     Dosage: 10 MG, UNK
     Route: 048
     Dates: start: 20091023, end: 20110618
  20. TETRAMIDE [Concomitant]
     Indication: DEPRESSION
     Dosage: 10 MG, UNK
     Route: 048
     Dates: start: 20110728, end: 20110729
  21. ASPIRIN [Concomitant]
     Indication: MYOCARDIAL INFARCTION
     Dosage: 100 MG, UNK
     Route: 048
     Dates: start: 20090220, end: 20110618
  22. SIGMART [Concomitant]
     Indication: MYOCARDIAL INFARCTION
     Dosage: 10 MG, UNK
     Route: 048
     Dates: start: 20090220, end: 20110618
  23. DIGOXIN [Concomitant]
     Indication: CARDIAC FAILURE CHRONIC
     Dosage: 0.125 MG, UNK
     Route: 048
     Dates: start: 20091118, end: 20110618

REACTIONS (2)
  - HEPATIC FUNCTION ABNORMAL [None]
  - CEREBELLAR HAEMORRHAGE [None]
